FAERS Safety Report 20733828 (Version 5)
Quarter: 2023Q2

REPORT INFORMATION
  Report Type: Report from Study
  Country: CA (occurrence: CA)
  Receive Date: 20220421
  Receipt Date: 20230504
  Transmission Date: 20230722
  Serious: Yes (Hospitalization, Other)
  Sender: FDA-Public Use
  Company Number: CA-BAUSCH-BL-2022-009415

PATIENT
  Age: 67 Year
  Sex: Female

DRUGS (3)
  1. SILIQ [Suspect]
     Active Substance: BRODALUMAB
     Indication: Psoriasis
     Dosage: 210 MG / 1.5 ML, WEEKLY
     Route: 058
     Dates: start: 20210716, end: 20210803
  2. SILIQ [Suspect]
     Active Substance: BRODALUMAB
     Dosage: 210 MG / 1.5 ML, Q 2 WEEKS
     Route: 058
  3. SILIQ [Suspect]
     Active Substance: BRODALUMAB
     Dosage: 210 MG / 1.5 ML, Q 2 WEEKS
     Route: 058
     Dates: start: 20230316

REACTIONS (8)
  - Myocardial infarction [Unknown]
  - Fall [Unknown]
  - Bradycardia [Not Recovered/Not Resolved]
  - Head injury [Unknown]
  - Concussion [Recovering/Resolving]
  - Asthenia [Not Recovered/Not Resolved]
  - Sinusitis [Recovering/Resolving]
  - Fatigue [Recovered/Resolved]

NARRATIVE: CASE EVENT DATE: 20220401
